FAERS Safety Report 5242280-9 (Version None)
Quarter: 2007Q1

REPORT INFORMATION
  Report Type: 
  Country: None (occurrence: None)
  Receive Date: 20070216
  Receipt Date: 20070216
  Transmission Date: 20070707
  Serious: Yes (Other)
  Sender: FDA-Public Use
  Company Number: None

PATIENT
  Age: 54 Year
  Sex: Female
  Weight: 86.1834 kg

DRUGS (2)
  1. LEUKERAN [Suspect]
     Indication: HAEMOLYTIC ANAEMIA
     Dosage: 20 TABLETS ONCE PO
     Route: 048
     Dates: start: 20060704, end: 20060704
  2. LEUKERAN [Suspect]
     Indication: NON-HODGKIN'S LYMPHOMA
     Dosage: 20 TABLETS ONCE PO
     Route: 048
     Dates: start: 20060704, end: 20060704

REACTIONS (1)
  - RASH [None]
